FAERS Safety Report 23707328 (Version 1)
Quarter: 2024Q2

REPORT INFORMATION
  Report Type: Report from Study
  Country: EG (occurrence: EG)
  Receive Date: 20240404
  Receipt Date: 20240404
  Transmission Date: 20240716
  Serious: No
  Sender: FDA-Public Use
  Company Number: EG-SANDOZ-SDZ2024EG035673

PATIENT
  Age: 8 Year
  Sex: Female
  Weight: 26 kg

DRUGS (1)
  1. OMNITROPE [Suspect]
     Active Substance: SOMATROPIN
     Indication: Short stature
     Dosage: 0.9 MG, QD
     Route: 058
     Dates: start: 20220207

REACTIONS (8)
  - Expired device used [Unknown]
  - Off label use [Unknown]
  - Wrong technique in product usage process [Unknown]
  - Product preparation error [Unknown]
  - Multiple use of single-use product [Unknown]
  - Medication error [Unknown]
  - Incorrect dose administered [Unknown]
  - Device leakage [Unknown]

NARRATIVE: CASE EVENT DATE: 20220207
